FAERS Safety Report 5905318-9 (Version None)
Quarter: 2008Q4

REPORT INFORMATION
  Report Type: 
  Country: None (occurrence: None)
  Receive Date: 20081001
  Receipt Date: 20080919
  Transmission Date: 20090506
  Serious: Yes (Life-Threatening, Hospitalization, Other)
  Sender: FDA-Public Use
  Company Number: JP-PFIZER INC-2008052609

PATIENT
  Sex: Female

DRUGS (6)
  1. IRINOTECAN HCL [Suspect]
     Indication: UTERINE CANCER
     Route: 042
     Dates: start: 20080603, end: 20080610
  2. RANDA [Suspect]
     Indication: UTERINE CANCER
     Dates: start: 20080603, end: 20080603
  3. NEUTROGIN [Concomitant]
     Route: 058
     Dates: start: 20080613, end: 20080614
  4. GRAN [Concomitant]
     Route: 058
     Dates: start: 20080615, end: 20080615
  5. GRAN [Concomitant]
     Route: 058
     Dates: start: 20080616, end: 20080617
  6. GRAN [Concomitant]
     Route: 042
     Dates: start: 20080618, end: 20080626

REACTIONS (8)
  - ANOREXIA [None]
  - DIARRHOEA [None]
  - HYPOALBUMINAEMIA [None]
  - HYPOKALAEMIA [None]
  - HYPOPROTEINAEMIA [None]
  - INFECTION [None]
  - PANCYTOPENIA [None]
  - PYREXIA [None]
